FAERS Safety Report 5270020-6 (Version None)
Quarter: 2007Q1

REPORT INFORMATION
  Report Type: 
  Country: None (occurrence: None)
  Receive Date: 20070320
  Receipt Date: 20070312
  Transmission Date: 20070707
  Serious: Yes (Hospitalization)
  Sender: FDA-Public Use
  Company Number: US-ROCHE-486132

PATIENT
  Age: 58 Year
  Sex: Male
  Weight: 77.1 kg

DRUGS (2)
  1. XELODA [Suspect]
     Route: 048
     Dates: start: 20070216, end: 20070223
  2. OXALIPLATIN [Suspect]
     Route: 065

REACTIONS (2)
  - STEVENS-JOHNSON SYNDROME [None]
  - VASCULITIS [None]
